FAERS Safety Report 7626706-9 (Version None)
Quarter: 2011Q3

REPORT INFORMATION
  Report Type: 
  Country: None (occurrence: None)
  Receive Date: 20110713
  Receipt Date: 20110628
  Transmission Date: 20111222
  Serious: Yes (Hospitalization)
  Sender: FDA-Public Use
  Company Number: PTU-11-03

PATIENT
  Sex: Female

DRUGS (1)
  1. PROPYLTHIOURACIL [Suspect]
     Indication: BASEDOW'S DISEASE
     Dosage: 50MG/2X DAY

REACTIONS (12)
  - DILATATION VENTRICULAR [None]
  - GOITRE [None]
  - RIGHT ATRIAL DILATATION [None]
  - CAESAREAN SECTION [None]
  - FOETAL DISORDER [None]
  - PLEURAL EFFUSION [None]
  - MATERNAL DRUGS AFFECTING FOETUS [None]
  - LEFT ATRIAL DILATATION [None]
  - NEONATAL RESPIRATORY DISTRESS SYNDROME [None]
  - OXYGEN SATURATION DECREASED [None]
  - CARDIOMEGALY [None]
  - CONGENITAL HYPOTHYROIDISM [None]
